FAERS Safety Report 9139136 (Version 2)
Quarter: 2014Q1

REPORT INFORMATION
  Report Type: Spontaneous
  Country: US (occurrence: US)
  Receive Date: 20130305
  Receipt Date: 20140108
  Transmission Date: 20141002
  Serious: Yes (Hospitalization, Other)
  Sender: FDA-Public Use
  Company Number: US-BAYER-2013-027553

PATIENT
  Age: 17 Year
  Sex: Female

DRUGS (3)
  1. YAZ [Suspect]
     Dosage: UNK
     Dates: start: 200902, end: 201002
  2. YASMIN [Suspect]
     Dosage: UNK
     Dates: start: 200902, end: 201002
  3. OCELLA [Suspect]
     Dosage: UNK
     Dates: start: 200902, end: 201002

REACTIONS (7)
  - Cholecystectomy [None]
  - Biliary dyskinesia [None]
  - Injury [None]
  - Pain [None]
  - Emotional distress [None]
  - Anxiety [None]
  - Psychological trauma [None]
